FAERS Safety Report 4667804-1 (Version None)
Quarter: 2005Q2

REPORT INFORMATION
  Report Type: 
  Country: None (occurrence: None)
  Receive Date: 20050520
  Receipt Date: 20050510
  Transmission Date: 20051028
  Serious: Yes (Disabling)
  Sender: FDA-Public Use
  Company Number: US-MERCK-0505USA01339

PATIENT
  Age: 85 Year
  Sex: Female
  Weight: 52 kg

DRUGS (5)
  1. ATENOLOL [Concomitant]
     Indication: HYPERTENSION
     Route: 048
     Dates: start: 19880101
  2. ZOCOR [Suspect]
     Indication: HYPERLIPIDAEMIA
     Route: 048
     Dates: start: 19920423, end: 20050421
  3. ENALAPRIL MALEATE [Concomitant]
     Indication: HYPERTENSION
     Route: 048
     Dates: start: 20050427
  4. NORVASC [Concomitant]
     Indication: HYPERTENSION
     Route: 048
     Dates: end: 20050315
  5. SYNTHROID [Concomitant]
     Indication: THYROID DISORDER
     Route: 048
     Dates: start: 20041230

REACTIONS (3)
  - DEMENTIA [None]
  - DIZZINESS [None]
  - WEIGHT DECREASED [None]
